FAERS Safety Report 19455099 (Version 1)
Quarter: 2021Q2

REPORT INFORMATION
  Report Type: Spontaneous
  Country: IN (occurrence: IN)
  Receive Date: 20210623
  Receipt Date: 20210623
  Transmission Date: 20210717
  Serious: Yes (Death)
  Sender: FDA-Public Use
  Company Number: IN-PFIZER INC-2021094107

PATIENT
  Age: 53 Year
  Sex: Male
  Weight: 45.9 kg

DRUGS (10)
  1. DACOPLICE [Suspect]
     Active Substance: DACOMITINIB
     Dosage: 30 MG, DAILY
     Route: 048
     Dates: start: 20191121
  2. ULTRACET [Concomitant]
     Active Substance: ACETAMINOPHEN\TRAMADOL HYDROCHLORIDE
     Indication: PAIN
     Dosage: 1 DF
  3. DOXYCYCLINE. [Concomitant]
     Active Substance: DOXYCYCLINE
     Dosage: 100 MG, 1X/DAY
  4. FAMOTIDINE. [Concomitant]
     Active Substance: FAMOTIDINE
     Dosage: 20 MG
  5. DACOPLICE [Suspect]
     Active Substance: DACOMITINIB
     Dosage: 30 MG, DAILY
     Route: 048
     Dates: start: 20210223
  6. PAUSE [Concomitant]
     Indication: HAEMOPTYSIS
     Dosage: 1 G, MAX 3/DAY
  7. HYDROCORTISONE. [Concomitant]
     Active Substance: HYDROCORTISONE
     Indication: RASH
  8. LOMOTIL [LOPERAMIDE HYDROCHLORIDE] [Concomitant]
     Active Substance: LOPERAMIDE HYDROCHLORIDE
     Indication: DIARRHOEA
     Dosage: 1 DF
  9. DACOPLICE [Suspect]
     Active Substance: DACOMITINIB
     Dosage: 45 MG, DAILY
     Route: 048
     Dates: start: 20191003
  10. COREX T [Concomitant]
     Indication: COUGH
     Dosage: 2 TSF TDS

REACTIONS (7)
  - Death [Fatal]
  - Dermatitis acneiform [Unknown]
  - Palmar-plantar erythrodysaesthesia syndrome [Unknown]
  - Cough [Unknown]
  - Weight decreased [Unknown]
  - Rash [Unknown]
  - Haemoptysis [Unknown]

NARRATIVE: CASE EVENT DATE: 20191121
